FAERS Safety Report 7047522-5 (Version None)
Quarter: 2010Q4

REPORT INFORMATION
  Report Type: 
  Country: None (occurrence: None)
  Receive Date: 20101015
  Receipt Date: 20101006
  Transmission Date: 20110411
  Serious: Yes (Other)
  Sender: FDA-Public Use
  Company Number: BR-PFIZER INC-2010125396

PATIENT
  Age: 25 Year
  Sex: Female
  Weight: 50 kg

DRUGS (3)
  1. CHAMPIX [Suspect]
     Indication: SMOKING CESSATION THERAPY
     Dosage: 0.5 MG, 1X/DAY
     Route: 048
     Dates: start: 20100924, end: 20100101
  2. FLUOXETINE [Concomitant]
     Indication: DEPRESSION
     Dosage: UNK
  3. ESTAZOLAM [Concomitant]
     Indication: INSOMNIA
     Dosage: UNK

REACTIONS (6)
  - AGGRESSION [None]
  - ANXIETY [None]
  - DEPRESSION [None]
  - MYDRIASIS [None]
  - SUICIDE ATTEMPT [None]
  - WEIGHT INCREASED [None]
